FAERS Safety Report 22780510 (Version 4)
Quarter: 2025Q1

REPORT INFORMATION
  Report Type: Spontaneous
  Country: DE (occurrence: DE)
  Receive Date: 20230803
  Receipt Date: 20250121
  Transmission Date: 20250409
  Serious: Yes (Other)
  Sender: LEO PHARM
  Company Number: DE-LEO Pharma-361580

PATIENT
  Age: 35 Year
  Sex: Male

DRUGS (4)
  1. ADBRY [Suspect]
     Active Substance: TRALOKINUMAB-LDRM
     Indication: Dermatitis atopic
     Dosage: 150 MG X 2 PRE-FILLED SYRINGES?TREATMENT IS ONGOING
     Route: 058
     Dates: start: 20230526
  2. ADBRY [Suspect]
     Active Substance: TRALOKINUMAB-LDRM
     Indication: Dermatitis atopic
     Dosage: 150 MG X 2 PRE-FILLED SYRINGES?TREATMENT IS ONGOING
     Route: 058
     Dates: start: 20230526
  3. ADBRY [Suspect]
     Active Substance: TRALOKINUMAB-LDRM
     Indication: Dermatitis atopic
     Dosage: 150 MG X 2 PRE-FILLED SYRINGES?TREATMENT IS ONGOING
     Route: 058
     Dates: start: 20230526
  4. CORTISONE [Concomitant]
     Active Substance: CORTISONE
     Indication: Asthma

REACTIONS (6)
  - Visual impairment [Recovered/Resolved]
  - Local reaction [Recovered/Resolved]
  - Eye swelling [Recovered/Resolved]
  - Injection site swelling [Recovered/Resolved]
  - Injection site erythema [Recovered/Resolved]
  - Swelling of eyelid [Recovered/Resolved]

NARRATIVE: CASE EVENT DATE: 20230730
